FAERS Safety Report 7547761-0 (Version None)
Quarter: 2011Q2

REPORT INFORMATION
  Report Type: 
  Country: None (occurrence: None)
  Receive Date: 20110614
  Receipt Date: 20110601
  Transmission Date: 20111010
  Serious: Yes (Other)
  Sender: FDA-Public Use
  Company Number: GB-MYLANLABS-2011S1011422

PATIENT
  Sex: Female

DRUGS (1)
  1. METOPROLOL [Suspect]
     Indication: BLOOD PRESSURE INCREASED
     Route: 048
     Dates: start: 20110509

REACTIONS (1)
  - BLOOD PRESSURE INCREASED [None]
